FAERS Safety Report 23248703 (Version 1)
Quarter: 2023Q4

REPORT INFORMATION
  Report Type: Spontaneous
  Country: US (occurrence: US)
  Receive Date: 20231201
  Receipt Date: 20231201
  Transmission Date: 20240110
  Serious: Yes (Other)
  Sender: FDA-Public Use
  Company Number: US-ALKEM LABORATORIES LIMITED-US-ALKEM-2023-11123

PATIENT
  Age: 55 Year
  Sex: Female

DRUGS (10)
  1. MYCOPHENOLATE MOFETIL [Suspect]
     Active Substance: MYCOPHENOLATE MOFETIL
     Indication: Immunosuppressant drug therapy
     Dosage: UNK
     Route: 065
  2. TACROLIMUS [Suspect]
     Active Substance: TACROLIMUS
     Indication: Immunosuppressant drug therapy
     Dosage: UNK
     Route: 065
  3. ALEMTUZUMAB [Suspect]
     Active Substance: ALEMTUZUMAB
     Indication: Immunosuppressant drug therapy
     Dosage: 30 MILLIGRAM (EVERY 4 WEEKS) (19 DOSES)
     Route: 065
  4. CYCLOPHOSPHAMIDE [Suspect]
     Active Substance: CYCLOPHOSPHAMIDE
     Indication: Immunosuppressant drug therapy
     Dosage: UNK
     Route: 065
  5. FLUDARABINE [Suspect]
     Active Substance: FLUDARABINE PHOSPHATE
     Indication: Prolymphocytic leukaemia
     Dosage: UNK
     Route: 065
  6. MELPHALAN [Suspect]
     Active Substance: MELPHALAN
     Indication: Prolymphocytic leukaemia
     Dosage: UNK
     Route: 065
  7. VENETOCLAX [Suspect]
     Active Substance: VENETOCLAX
     Indication: Prolymphocytic leukaemia
     Dosage: 100 MILLIGRAM, QD (FOR 14 DAYS PLUS 14 DAYS OFF)
     Route: 065
  8. ATOVAQUONE [Concomitant]
     Active Substance: ATOVAQUONE
     Indication: Infection prophylaxis
     Dosage: 1500 MILLIGRAM, OD (ONCE DAILY)
     Route: 065
  9. POSACONAZOLE [Concomitant]
     Active Substance: POSACONAZOLE
     Indication: Infection prophylaxis
     Dosage: 300 MILLIGRAM, OD
     Route: 065
  10. VALACYCLOVIR [Concomitant]
     Active Substance: VALACYCLOVIR HYDROCHLORIDE
     Indication: Infection prophylaxis
     Dosage: 500 MILLIGRAM, BID (TWICE A DAILY)
     Route: 065

REACTIONS (3)
  - Mycobacterium haemophilum infection [Recovering/Resolving]
  - Skin infection [Recovering/Resolving]
  - Tenosynovitis [Recovered/Resolved]
